FAERS Safety Report 5070240-X (Version None)
Quarter: 2006Q3

REPORT INFORMATION
  Report Type: 
  Country: None (occurrence: None)
  Receive Date: 20060803
  Receipt Date: 20060710
  Transmission Date: 20061208
  Serious: Yes (Other)
  Sender: FDA-Public Use
  Company Number: ES-MERCK-0607ESP00014

PATIENT
  Age: 68 Year
  Sex: Male

DRUGS (11)
  1. CANCIDAS [Suspect]
     Indication: SYSTEMIC CANDIDA
     Route: 041
     Dates: start: 20060627, end: 20060702
  2. CANCIDAS [Suspect]
     Route: 041
     Dates: start: 20060703, end: 20060703
  3. AMIODARONE HYDROCHLORIDE [Concomitant]
     Route: 065
  4. DIPYRONE [Concomitant]
     Route: 065
  5. SPIRONOLACTONE [Concomitant]
     Route: 065
  6. DALTEPARIN SODIUM [Concomitant]
     Route: 065
  7. PROPOFOL [Concomitant]
     Route: 065
  8. NOREPINEPHRINE HYDROCHLORIDE [Concomitant]
     Route: 065
  9. TEICOPLANIN [Concomitant]
     Route: 065
  10. DIGOXIN [Concomitant]
     Route: 065
  11. FLUCONAZOLE [Concomitant]
     Route: 065

REACTIONS (6)
  - ANAEMIA [None]
  - CHOLESTASIS [None]
  - HEPATOTOXICITY [None]
  - PLATELET COUNT DECREASED [None]
  - PYREXIA [None]
  - WHITE BLOOD CELL COUNT DECREASED [None]
